FAERS Safety Report 12758334 (Version 1)
Quarter: 2016Q3

REPORT INFORMATION
  Report Type: Spontaneous
  Country: US (occurrence: US)
  Receive Date: 20160919
  Receipt Date: 20160919
  Transmission Date: 20161109
  Serious: No
  Sender: FDA-Public Use
  Company Number: US-GLAXOSMITHKLINE-US2016135379

PATIENT
  Age: 78 Year
  Sex: Female

DRUGS (1)
  1. NICORETTE [Suspect]
     Active Substance: NICOTINE
     Indication: SMOKING CESSATION THERAPY
     Dosage: 4 MG, UNK
     Dates: start: 2016, end: 201609

REACTIONS (8)
  - Anxiety [Recovered/Resolved]
  - Tremor [Recovered/Resolved]
  - Feeling jittery [Unknown]
  - Stress [Recovered/Resolved]
  - Drug administration error [Unknown]
  - Palpitations [Recovered/Resolved]
  - Nervousness [Recovered/Resolved]
  - Feeling abnormal [Recovered/Resolved]
